FAERS Safety Report 13616087 (Version 1)
Quarter: 2017Q2

REPORT INFORMATION
  Report Type: Spontaneous
  Country: US (occurrence: US)
  Receive Date: 20170605
  Receipt Date: 20170605
  Transmission Date: 20170830
  Serious: No
  Sender: FDA-Public Use
  Company Number: None

PATIENT
  Age: 79 Year
  Sex: Male
  Weight: 99.5 kg

DRUGS (2)
  1. HYDROCHLOROTHIAZIDE/LISINOPRIL [Suspect]
     Active Substance: HYDROCHLOROTHIAZIDE\LISINOPRIL
     Indication: HYPERTENSION
     Dosage: 12.5/20MG EVERYDAY PO
     Route: 048
     Dates: start: 20100909, end: 20130815
  2. HYDROCHLOROTHIAZIDE/LISINOPRIL [Suspect]
     Active Substance: HYDROCHLOROTHIAZIDE\LISINOPRIL
     Indication: DIABETES MELLITUS
     Dosage: 12.5/20MG EVERYDAY PO
     Route: 048
     Dates: start: 20100909, end: 20130815

REACTIONS (1)
  - Angioedema [None]

NARRATIVE: CASE EVENT DATE: 20130815
